FAERS Safety Report 9796075 (Version 4)
Quarter: 2014Q1

REPORT INFORMATION
  Report Type: Other
  Country: NO (occurrence: NO)
  Receive Date: 20140103
  Receipt Date: 20140305
  Transmission Date: 20141002
  Serious: Yes (Death, Other)
  Sender: FDA-Public Use
  Company Number: NO-BRISTOL-MYERS SQUIBB COMPANY-19940410

PATIENT
  Age: 17 Year
  Sex: Female

DRUGS (12)
  1. IFEX [Suspect]
     Indication: OSTEOSARCOMA
     Dosage: 14 G/M2 OR 9G/M2 OR 6G/M2?6GRAM,14GRAM,9GRAM
     Route: 065
  2. IFEX [Suspect]
     Indication: OSTEOSARCOMA METASTATIC
     Dosage: 14 G/M2 OR 9G/M2 OR 6G/M2?6GRAM,14GRAM,9GRAM
     Route: 065
  3. CISPLATIN [Suspect]
     Indication: OSTEOSARCOMA
     Dosage: 120 MG/M2
     Route: 065
  4. CISPLATIN [Suspect]
     Indication: OSTEOSARCOMA METASTATIC
     Dosage: 120 MG/M2
     Route: 065
  5. ETOPOSIDE [Suspect]
     Indication: OSTEOSARCOMA
     Dosage: 500 MG/M2
     Route: 065
  6. ETOPOSIDE [Suspect]
     Indication: OSTEOSARCOMA METASTATIC
     Dosage: 500 MG/M2
     Route: 065
  7. METHOTREXATE [Suspect]
     Indication: OSTEOSARCOMA METASTATIC
     Dosage: 12G/M2?12GRAM
  8. METHOTREXATE [Suspect]
     Indication: OSTEOSARCOMA
     Dosage: 12G/M2?12GRAM
  9. DOXORUBICIN [Suspect]
     Indication: METASTASES TO LUNG
     Dosage: 75 MG/M2
     Route: 042
  10. DOXORUBICIN [Suspect]
     Indication: OSTEOSARCOMA METASTATIC
     Dosage: 75 MG/M2
     Route: 042
  11. VINCRISTINE [Suspect]
     Indication: EWING^S SARCOMA
  12. CYCLOPHOSPHAMIDE [Suspect]
     Indication: EWING^S SARCOMA

REACTIONS (12)
  - Radiation pneumonitis [Fatal]
  - Chest pain [Fatal]
  - Lung disorder [Fatal]
  - Dyspnoea [Fatal]
  - Pulmonary toxicity [Fatal]
  - Metastases to lung [Unknown]
  - Osteosarcoma metastatic [Unknown]
  - Febrile neutropenia [Unknown]
  - Thrombocytopenia [Unknown]
  - Malignant neoplasm progression [Unknown]
  - Rash [Unknown]
  - Off label use [Unknown]
